FAERS Safety Report 5646760-3 (Version None)
Quarter: 2008Q1

REPORT INFORMATION
  Report Type: 
  Country: None (occurrence: None)
  Receive Date: 20080303
  Receipt Date: 20080220
  Transmission Date: 20080703
  Serious: Yes (Other)
  Sender: FDA-Public Use
  Company Number: JP-ROCHE-549290

PATIENT
  Age: 3 Year
  Sex: Male
  Weight: 13 kg

DRUGS (5)
  1. TAMIFLU [Suspect]
     Route: 048
     Dates: start: 20080207, end: 20080207
  2. TAMIFLU [Suspect]
     Route: 048
     Dates: start: 20080208, end: 20080208
  3. MEPTIN [Concomitant]
     Route: 048
     Dates: start: 20080207, end: 20080212
  4. MUCODYNE [Concomitant]
     Route: 048
     Dates: start: 20080207, end: 20080212
  5. HOKUNALIN [Concomitant]
     Dosage: FORM REPORTED AS TAPE.
     Route: 062
     Dates: start: 20080227

REACTIONS (2)
  - AGITATION [None]
  - HALLUCINATION [None]
